FAERS Safety Report 15425660 (Version 1)
Quarter: 2018Q3

REPORT INFORMATION
  Report Type: Spontaneous
  Country: SA (occurrence: SA)
  Receive Date: 20180925
  Receipt Date: 20180925
  Transmission Date: 20181010
  Serious: Yes (Other)
  Sender: FDA-Public Use
  Company Number: SA-SA-2018SA261346

PATIENT
  Age: 40 Year
  Sex: Male

DRUGS (1)
  1. LANTUS [Suspect]
     Active Substance: INSULIN GLARGINE
     Indication: DIABETES MELLITUS
     Dosage: 30 IU, BID
     Route: 065

REACTIONS (3)
  - Hypoglycaemia [Unknown]
  - Overdose [Unknown]
  - Cerebrovascular accident [Unknown]
